FAERS Safety Report 5115028-6 (Version None)
Quarter: 2006Q3

REPORT INFORMATION
  Report Type: 
  Country: None (occurrence: None)
  Receive Date: 20060925
  Receipt Date: 20060925
  Transmission Date: 20061208
  Serious: Yes (Hospitalization)
  Sender: FDA-Public Use
  Company Number: None

PATIENT
  Age: 65 Year
  Sex: Female
  Weight: 85.7298 kg

DRUGS (13)
  1. IRINOTECAN HYDROCHLORIDE [Suspect]
     Indication: SMALL CELL LUNG CANCER STAGE UNSPECIFIED
     Dosage: 150 MG/M2   Q3W   IV
     Route: 042
     Dates: start: 20060802, end: 20060802
  2. OXALIPLATIN [Suspect]
     Indication: SMALL CELL LUNG CANCER STAGE UNSPECIFIED
     Dosage: 85 MG/M2   Q3W   IV
     Route: 042
     Dates: start: 20060802, end: 20060802
  3. NEULASTA [Concomitant]
  4. AVANDIA [Concomitant]
  5. GLIPIZIDE ER [Concomitant]
  6. ACIPHEX [Concomitant]
  7. ENALAPRIL MALEATE [Concomitant]
  8. BUSPIRONE HCL [Concomitant]
  9. FLUOXETINE [Concomitant]
  10. ZETIA [Concomitant]
  11. LIPITOR [Concomitant]
  12. PHENERGAN [Concomitant]
  13. DOCLOFENAC [Concomitant]

REACTIONS (5)
  - CLOSTRIDIAL INFECTION [None]
  - FEBRILE NEUTROPENIA [None]
  - NEUTROPHIL COUNT INCREASED [None]
  - REBOUND EFFECT [None]
  - WHITE BLOOD CELL COUNT INCREASED [None]
